FAERS Safety Report 11244931 (Version 1)
Quarter: 2015Q3

REPORT INFORMATION
  Report Type: Spontaneous
  Country: JP (occurrence: JP)
  Receive Date: 20150707
  Receipt Date: 20150707
  Transmission Date: 20151125
  Serious: Yes (Other)
  Sender: FDA-Public Use
  Company Number: PHJP2015JP010253

PATIENT
  Age: 5 Year
  Sex: Male
  Weight: 19 kg

DRUGS (1)
  1. CARBAMAZEPINE. [Suspect]
     Active Substance: CARBAMAZEPINE
     Indication: INFANTILE SPASMS
     Route: 048

REACTIONS (4)
  - Pyrexia [Unknown]
  - Off label use [Unknown]
  - Complex partial seizures [Unknown]
  - Diarrhoea [Unknown]
